FAERS Safety Report 4523300-3 (Version None)
Quarter: 2004Q4

REPORT INFORMATION
  Report Type: 
  Country: None (occurrence: None)
  Receive Date: 20041202
  Receipt Date: 20041119
  Transmission Date: 20050328
  Serious: Yes (Hospitalization)
  Sender: FDA-Public Use
  Company Number: THYM-10118

PATIENT
  Age: 38 Year
  Sex: Male
  Weight: 72 kg

DRUGS (7)
  1. THYMOGLOBULIN [Suspect]
     Indication: PROPHYLAXIS AGAINST TRANSPLANT REJECTION
     Dosage: 50 MG QD IV
     Route: 042
     Dates: start: 20040320, end: 20040401
  2. THYMOGLOBULIN [Suspect]
     Indication: PROPHYLAXIS AGAINST TRANSPLANT REJECTION
     Dates: start: 20040403
  3. BACTRIM [Suspect]
     Dosage: 400 MG DAILY PO
     Route: 048
     Dates: start: 20040323, end: 20040331
  4. FLAGYL [Suspect]
     Dosage: 500 MG DAILY PO
     Route: 048
     Dates: start: 20040329, end: 20040401
  5. CLAMOXYL [Suspect]
     Dosage: 500 MG QID PO
     Route: 048
     Dates: start: 20040329, end: 20040401
  6. CELLCEPT [Concomitant]
  7. CORTICOSTEROIDS [Concomitant]

REACTIONS (7)
  - APHASIA [None]
  - ELECTROCARDIOGRAM REPOLARISATION ABNORMALITY [None]
  - HEMIPLEGIA [None]
  - NECK PAIN [None]
  - NEPHRITIS INTERSTITIAL [None]
  - PYREXIA [None]
  - SERUM SICKNESS [None]
